FAERS Safety Report 4654996-3 (Version None)
Quarter: 2005Q2

REPORT INFORMATION
  Report Type: 
  Country: None (occurrence: None)
  Receive Date: 20050506
  Receipt Date: 20050302
  Transmission Date: 20051028
  Serious: Yes (Other)
  Sender: FDA-Public Use
  Company Number: PHFR2005IE01085

PATIENT
  Age: 32 Year
  Sex: Male

DRUGS (8)
  1. CLOZARIL [Suspect]
     Indication: SCHIZOPHRENIA
     Dosage: UNK, UNK
     Route: 048
     Dates: start: 20050210, end: 20050226
  2. BISOPROLOL FUMARATE [Concomitant]
     Dosage: 7.5 MG, QD
  3. ASPIRIN [Concomitant]
     Dosage: 75 MG, QD
  4. ZOTON [Concomitant]
     Dosage: 30 MG, QD
  5. ATORVASTATIN [Concomitant]
     Dosage: 20 MG NOCTE
  6. NICOTINE [Concomitant]
  7. IMDUR [Concomitant]
     Dosage: 30 MG, QD
  8. SOLIAN [Concomitant]
     Indication: SCHIZOPHRENIA
     Dosage: 400 MG, BID

REACTIONS (7)
  - ARTERIOSPASM CORONARY [None]
  - BLOOD CREATINE PHOSPHOKINASE INCREASED [None]
  - CHEST PAIN [None]
  - ELECTROCARDIOGRAM ST SEGMENT ELEVATION [None]
  - EOSINOPHIL COUNT INCREASED [None]
  - PYREXIA [None]
  - TROPONIN INCREASED [None]
